FAERS Safety Report 26214276 (Version 1)
Quarter: 2025Q4

REPORT INFORMATION
  Report Type: Spontaneous
  Country: IN (occurrence: IN)
  Receive Date: 20251230
  Receipt Date: 20251230
  Transmission Date: 20260117
  Serious: Yes (Hospitalization, Disabling)
  Sender: Alora Pharma
  Company Number: IN-ACELLA PHARMACEUTICALS, LLC-2025ALO02681

PATIENT
  Age: 59 Year
  Sex: Female

DRUGS (3)
  1. PHENYTOIN SODIUM [Suspect]
     Active Substance: PHENYTOIN SODIUM
     Indication: Seizure
     Dosage: 300 MG
     Route: 065
     Dates: start: 2024
  2. LEVETIRACETAM [Concomitant]
     Active Substance: LEVETIRACETAM
     Indication: Seizure
     Dosage: 1 G
     Route: 065
  3. CLOBAZAM [Concomitant]
     Active Substance: CLOBAZAM
     Indication: Seizure
     Dosage: 5 MG
     Route: 065

REACTIONS (5)
  - Blindness [Recovering/Resolving]
  - Hallucination, visual [Recovered/Resolved]
  - Hallucination, tactile [Recovered/Resolved]
  - Psychotic disorder due to a general medical condition [Recovered/Resolved]
  - Toxic epidermal necrolysis [Recovered/Resolved]
